FAERS Safety Report 7702419-X (Version None)
Quarter: 2011Q3

REPORT INFORMATION
  Report Type: 
  Country: None (occurrence: None)
  Receive Date: 20110822
  Receipt Date: 20110812
  Transmission Date: 20111222
  Serious: Yes (Other)
  Sender: FDA-Public Use
  Company Number: GB-GENENTECH-323016

PATIENT
  Age: 68 Year
  Sex: Female
  Weight: 99.7 kg

DRUGS (1)
  1. RITUXIMAB [Suspect]
     Indication: IDIOPATHIC THROMBOCYTOPENIC PURPURA
     Dosage: 800 MG, UNK
     Route: 042
     Dates: start: 20100122

REACTIONS (1)
  - OVARIAN CANCER METASTATIC [None]
